FAERS Safety Report 8199349-9 (Version None)
Quarter: 2012Q1

REPORT INFORMATION
  Report Type: 
  Country: None (occurrence: None)
  Receive Date: 20120309
  Receipt Date: 20120308
  Transmission Date: 20120608
  Serious: Yes (Other)
  Sender: FDA-Public Use
  Company Number: FI-PFIZER INC-2012052078

PATIENT
  Age: 61 Year
  Sex: Male

DRUGS (1)
  1. VARENICLINE TARTRATE [Suspect]
     Indication: NICOTINE DEPENDENCE
     Dosage: 0.5 MG + 1 MG
     Route: 048
     Dates: start: 20120110, end: 20120116

REACTIONS (4)
  - SUICIDAL IDEATION [None]
  - RESTLESSNESS [None]
  - NEGATIVE THOUGHTS [None]
  - THINKING ABNORMAL [None]
